FAERS Safety Report 16891481 (Version 2)
Quarter: 2019Q4

REPORT INFORMATION
  Report Type: Spontaneous
  Country: FR (occurrence: FR)
  Receive Date: 20191007
  Receipt Date: 20191219
  Transmission Date: 20200122
  Serious: Yes (Death, Life-Threatening, Other)
  Sender: FDA-Public Use
  Company Number: FR-SA-2019SA276580

PATIENT
  Age: 54 Year
  Sex: Female
  Weight: 46 kg

DRUGS (5)
  1. DESLORATADINE. [Suspect]
     Active Substance: DESLORATADINE
     Indication: TOXICITY TO VARIOUS AGENTS
     Dosage: 65 MG, TOTAL 13 TABLETS OF 5MG IN ONE TAKE
     Route: 048
     Dates: start: 20190809
  2. POTASSIUM CHLORIDE. [Suspect]
     Active Substance: POTASSIUM CHLORIDE
     Indication: TOXICITY TO VARIOUS AGENTS
     Dosage: 13 DF, 1X (13 CAPSULES OF 600MG IN ONE TAKE)
     Route: 048
     Dates: start: 20190809
  3. MIANSERINE [Suspect]
     Active Substance: MIANSERIN HYDROCHLORIDE
     Indication: TOXICITY TO VARIOUS AGENTS
     Dosage: 180 MG, 1X (3 TABLETS OF 60MG IN ONE TAKE)
     Route: 048
     Dates: start: 20190809
  4. ZOLPIDEM TARTRATE. [Suspect]
     Active Substance: ZOLPIDEM TARTRATE
     Indication: TOXICITY TO VARIOUS AGENTS
     Dosage: 140 MG, TOTAL (14 TABLETS OF 10 MG IN ONE TAKE)
     Route: 048
     Dates: start: 20190809
  5. GABAPENTIN. [Suspect]
     Active Substance: GABAPENTIN
     Indication: TOXICITY TO VARIOUS AGENTS
     Dosage: 6000 MG, 1X (20 CAPSULES OF 300MG IN ONE TAKE)
     Route: 048
     Dates: start: 20190809

REACTIONS (7)
  - Arrhythmia [Fatal]
  - Respiratory disorder [Fatal]
  - Toxicity to various agents [Fatal]
  - Cardio-respiratory arrest [Fatal]
  - Intentional overdose [Fatal]
  - Disseminated intravascular coagulation [Fatal]
  - Hyperkalaemia [Fatal]

NARRATIVE: CASE EVENT DATE: 20190809
